FAERS Safety Report 16909708 (Version 1)
Quarter: 2019Q4

REPORT INFORMATION
  Report Type: Spontaneous
  Country: US (occurrence: US)
  Receive Date: 20191011
  Receipt Date: 20191011
  Transmission Date: 20200122
  Serious: Yes (Other)
  Sender: FDA-Public Use
  Company Number: None

PATIENT
  Age: 55 Year
  Sex: Female
  Weight: 83.25 kg

DRUGS (1)
  1. EQUATE NITE TIME COUGH [Suspect]
     Active Substance: DEXTROMETHORPHAN HYDROBROMIDE\DOXYLAMINE SUCCINATE
     Indication: COUGH
     Dosage: ?          QUANTITY:30 OUNCE(S);?
     Route: 048
     Dates: start: 20191010, end: 20191011

REACTIONS (2)
  - Cough [None]
  - Somnolence [None]

NARRATIVE: CASE EVENT DATE: 20191010
